FAERS Safety Report 12516036 (Version 1)
Quarter: 2016Q2

REPORT INFORMATION
  Report Type: Spontaneous
  Country: GB (occurrence: GB)
  Receive Date: 20160630
  Receipt Date: 20160630
  Transmission Date: 20160815
  Serious: Yes (Other)
  Sender: FDA-Public Use
  Company Number: GB-MYLANLABS-2016M1026557

PATIENT

DRUGS (2)
  1. LIVIAL [Concomitant]
     Active Substance: TIBOLONE
     Dosage: UNK
  2. LANSOPRAZOLE. [Suspect]
     Active Substance: LANSOPRAZOLE
     Indication: GASTROOESOPHAGEAL REFLUX DISEASE
     Dosage: 30 MG, QD
     Route: 048
     Dates: end: 20160611

REACTIONS (5)
  - Abdominal distension [Unknown]
  - Throat irritation [Not Recovered/Not Resolved]
  - Gastrooesophageal reflux disease [Unknown]
  - Dyspepsia [Not Recovered/Not Resolved]
  - Cough [Unknown]

NARRATIVE: CASE EVENT DATE: 20160612
